FAERS Safety Report 6477442-6 (Version None)
Quarter: 2009Q4

REPORT INFORMATION
  Report Type: 
  Country: None (occurrence: None)
  Receive Date: 20091207
  Receipt Date: 20091123
  Transmission Date: 20100525
  Serious: Yes (Other)
  Sender: FDA-Public Use
  Company Number: US-SANOFI-AVENTIS-2009SA000662

PATIENT
  Age: 48 Year
  Sex: Male
  Weight: 81.7 kg

DRUGS (7)
  1. OXALIPLATIN [Suspect]
     Indication: COLORECTAL CANCER
     Route: 041
     Dates: start: 20090916, end: 20090916
  2. OXALIPLATIN [Suspect]
     Route: 041
     Dates: start: 20090904, end: 20090904
  3. FLUOROURACIL [Suspect]
     Indication: COLORECTAL CANCER
     Route: 040
     Dates: start: 20090904, end: 20090904
  4. FLUOROURACIL [Suspect]
     Route: 041
     Dates: start: 20090904, end: 20090906
  5. ANTINEOPLASTIC AGENTS [Suspect]
     Indication: COLORECTAL CANCER
     Route: 048
     Dates: start: 20090809, end: 20090917
  6. CARBAMAZEPINE [Concomitant]
     Route: 065
     Dates: start: 20080101
  7. LISINOPRIL [Concomitant]
     Indication: HYPERTENSION
     Route: 065
     Dates: start: 20080101

REACTIONS (6)
  - BLOOD PHOSPHORUS DECREASED [None]
  - DIARRHOEA [None]
  - FATIGUE [None]
  - HAEMOGLOBIN DECREASED [None]
  - NEUTROPENIA [None]
  - WHITE BLOOD CELL COUNT DECREASED [None]
